FAERS Safety Report 7597389-1 (Version None)
Quarter: 2011Q3

REPORT INFORMATION
  Report Type: 
  Country: None (occurrence: None)
  Receive Date: 20110708
  Receipt Date: 20110623
  Transmission Date: 20111222
  Serious: Yes (Other)
  Sender: FDA-Public Use
  Company Number: PHHY2011IR56860

PATIENT
  Age: 70 Year
  Sex: Female

DRUGS (1)
  1. ZOLEDRONIC ACID [Suspect]
     Indication: OSTEOPOROSIS
     Dosage: 5 MG, ANNUAL IV INFUSION
     Route: 042
     Dates: start: 20110601

REACTIONS (2)
  - FATIGUE [None]
  - ARRHYTHMIA [None]
